FAERS Safety Report 9004028 (Version 7)
Quarter: 2014Q2

REPORT INFORMATION
  Report Type: Spontaneous
  Country: US (occurrence: US)
  Receive Date: 20130108
  Receipt Date: 20140407
  Transmission Date: 20141212
  Serious: No
  Sender: FDA-Public Use
  Company Number: US-ROXANE LABORATORIES, INC.-2012-RO-02609RO

PATIENT
  Age: 46 Year
  Sex: Female

DRUGS (7)
  1. LITHIUM CARBONATE [Suspect]
     Indication: ANXIETY DISORDER
     Route: 048
     Dates: start: 20130228
  2. LITHIUM CARBONATE [Suspect]
     Indication: BIPOLAR DISORDER
  3. ATIVAN [Concomitant]
     Dosage: 3 MG
     Route: 065
  4. RISPERDAL [Concomitant]
     Dosage: 1 MG
     Route: 065
  5. AMOUR THYROID [Concomitant]
     Route: 065
  6. AMBIEN [Concomitant]
     Route: 065
  7. LEXAPRO [Concomitant]
     Route: 065

REACTIONS (5)
  - Drug ineffective for unapproved indication [Not Recovered/Not Resolved]
  - Nervousness [Not Recovered/Not Resolved]
  - Feeling jittery [Not Recovered/Not Resolved]
  - Product quality issue [Not Recovered/Not Resolved]
  - Insomnia [Not Recovered/Not Resolved]
